FAERS Safety Report 10297336 (Version 3)
Quarter: 2014Q3

REPORT INFORMATION
  Report Type: Report from Study
  Country: CA (occurrence: CA)
  Receive Date: 20140711
  Receipt Date: 20140808
  Transmission Date: 20150326
  Serious: Yes (Hospitalization)
  Sender: FDA-Public Use
  Company Number: CA-BRISTOL-MYERS SQUIBB COMPANY-21181367

PATIENT
  Age: 75 Year
  Sex: Female

DRUGS (17)
  1. SENOKOT [Concomitant]
     Active Substance: SENNOSIDES
  2. NITROGLYCERIN. [Concomitant]
     Active Substance: NITROGLYCERIN
  3. LORAZEPAM. [Concomitant]
     Active Substance: LORAZEPAM
  4. ORENCIA [Suspect]
     Active Substance: ABATACEPT
     Indication: RHEUMATOID ARTHRITIS
     Dosage: IV 750MG
     Dates: start: 20140614, end: 2014
  5. METOPROLOL [Concomitant]
     Active Substance: METOPROLOL
  6. MIRTAZAPINE. [Concomitant]
     Active Substance: MIRTAZAPINE
  7. VOLTAREN [Concomitant]
     Active Substance: DICLOFENAC SODIUM
  8. LEVOFLOXACIN [Concomitant]
     Active Substance: LEVOFLOXACIN
  9. CITALOPRAM [Concomitant]
     Active Substance: CITALOPRAM HYDROBROMIDE
  10. STATEX [Concomitant]
     Active Substance: MORPHINE SULFATE
  11. METHOTREXATE [Suspect]
     Active Substance: METHOTREXATE
  12. LOMOTIL [Concomitant]
     Active Substance: ATROPINE SULFATE\DIPHENOXYLATE HYDROCHLORIDE
  13. ORENCIA [Suspect]
     Active Substance: ABATACEPT
     Indication: RHEUMATOID ARTHRITIS
     Route: 042
     Dates: start: 20140614
  14. PREGABALIN. [Concomitant]
     Active Substance: PREGABALIN
  15. HUMIRA [Suspect]
     Active Substance: ADALIMUMAB
     Dates: end: 20140708
  16. RISEDRONATE SODIUM. [Concomitant]
     Active Substance: RISEDRONATE SODIUM
  17. MORPHINE [Concomitant]
     Active Substance: MORPHINE

REACTIONS (2)
  - Chest pain [Unknown]
  - Pneumonia [Unknown]

NARRATIVE: CASE EVENT DATE: 20140618
